FAERS Safety Report 11059111 (Version 1)
Quarter: 2015Q2

REPORT INFORMATION
  Report Type: Spontaneous
  Country: US (occurrence: None)
  Receive Date: 20150420
  Receipt Date: 20150420
  Transmission Date: 20150821
  Serious: No
  Sender: FDA-Public Use
  Company Number: AEGR001171

PATIENT
  Age: 72 Year
  Sex: Female
  Weight: 69.4 kg

DRUGS (9)
  1. NITROSTAT (GLYCERYL TRINITRATE) [Concomitant]
  2. FLONASE (FLATICASONE PROPIONATE) [Concomitant]
  3. VITAMINS NOS [Concomitant]
     Active Substance: VITAMINS
  4. PREVACID [Concomitant]
     Active Substance: LANSOPRAZOLE
  5. ASPIRIN (ACETYLSALICYLIC ACID) [Concomitant]
     Active Substance: ASPIRIN
  6. CLOPIDOGREL (CLOPIDOGREL HYDROCHLORIDE) [Concomitant]
  7. JUXTAPID [Suspect]
     Active Substance: LOMITAPIDE MESYLATE
     Indication: TYPE IIA HYPERLIPIDAEMIA
     Route: 048
     Dates: start: 20150121, end: 20150206
  8. PROBIOTICS [Concomitant]
     Active Substance: PROBIOTICS NOS
  9. OMEGA 3 6 9 (OMEGA 9 FATTY ACIDS, OMEGA-3 FATTY ACIDS, OMEGA-6 FATTY ACIDS) [Concomitant]

REACTIONS (4)
  - Therapy cessation [None]
  - Nausea [None]
  - Diarrhoea [None]
  - Weight decreased [None]

NARRATIVE: CASE EVENT DATE: 201501
